FAERS Safety Report 4454356-4 (Version None)
Quarter: 2004Q3

REPORT INFORMATION
  Report Type: 
  Country: None (occurrence: None)
  Receive Date: 20040920
  Receipt Date: 20040914
  Transmission Date: 20050211
  Serious: Yes (Hospitalization)
  Sender: FDA-Public Use
  Company Number: FR-MERCK-0409FRA00055

PATIENT
  Age: 68 Year
  Sex: Male

DRUGS (7)
  1. ALFUZOSIN HYDROCHLORIDE [Concomitant]
     Indication: BENIGN PROSTATIC HYPERPLASIA
     Route: 048
     Dates: end: 20040824
  2. PRIMAXIN [Suspect]
     Route: 041
     Dates: start: 20040723, end: 20040824
  3. CIPROFLOXACIN HYDROCHLORIDE [Suspect]
     Route: 048
     Dates: start: 20040802, end: 20040824
  4. CLOPIDOGREL BISULFATE [Suspect]
     Route: 048
     Dates: start: 20040723, end: 20040824
  5. GLICLAZIDE [Concomitant]
     Indication: DIABETES MELLITUS NON-INSULIN-DEPENDENT
     Route: 048
     Dates: end: 20040824
  6. HYDROCHLOROTHIAZIDE AND VALSARTAN [Concomitant]
     Indication: HYPERTENSION
     Route: 048
     Dates: end: 20040824
  7. OMEPRAZOLE [Suspect]
     Route: 048
     Dates: start: 20040723, end: 20040824

REACTIONS (2)
  - AGRANULOCYTOSIS [None]
  - DERMATITIS EXFOLIATIVE [None]
